FAERS Safety Report 5810475-9 (Version None)
Quarter: 2008Q3

REPORT INFORMATION
  Report Type: 
  Country: None (occurrence: None)
  Receive Date: 20080715
  Receipt Date: 20080711
  Transmission Date: 20090109
  Serious: Yes (Other)
  Sender: FDA-Public Use
  Company Number: CH-BRISTOL-MYERS SQUIBB COMPANY-14252357

PATIENT
  Age: 57 Year
  Sex: Female

DRUGS (3)
  1. ORENCIA [Suspect]
     Indication: RHEUMATOID ARTHRITIS
     Dosage: DURATION 2-3WEEKS
     Route: 042
  2. INDERAL [Concomitant]
  3. CALCIUM-SANDOZ [Concomitant]

REACTIONS (1)
  - APHTHOUS STOMATITIS [None]
